FAERS Safety Report 15776493 (Version 1)
Quarter: 2018Q4

REPORT INFORMATION
  Report Type: Spontaneous
  Country: US (occurrence: US)
  Receive Date: 20181209
  Receipt Date: 20181209
  Transmission Date: 20190205
  Serious: Yes (Life-Threatening, Hospitalization, Disabling, Other)
  Sender: FDA-Public Use
  Company Number: None

PATIENT
  Age: 58 Year
  Sex: Male
  Weight: 135 kg

DRUGS (2)
  1. PREDNISOLONE INJECTION [Suspect]
     Active Substance: PREDNISOLONE
     Indication: CARDIAC FAILURE CONGESTIVE
     Dosage: ?          QUANTITY:1 DF DOSAGE FORM;?
     Route: 042
  2. PREDNISOLONE INJECTION [Suspect]
     Active Substance: PREDNISOLONE
     Indication: PNEUMONIA
     Dosage: ?          QUANTITY:1 DF DOSAGE FORM;?
     Route: 042

REACTIONS (4)
  - Apparent death [None]
  - Cardiac arrest [None]
  - Cardio-respiratory arrest [None]
  - Drug hypersensitivity [None]
